FAERS Safety Report 19581413 (Version 2)
Quarter: 2021Q3

REPORT INFORMATION
  Report Type: Report from Study
  Country: FR (occurrence: FR)
  Receive Date: 20210719
  Receipt Date: 20210730
  Transmission Date: 20211014
  Serious: Yes (Hospitalization)
  Sender: FDA-Public Use
  Company Number: FR-PFIZER INC-2021843870

PATIENT
  Age: 85 Year
  Sex: Female
  Weight: 70 kg

DRUGS (19)
  1. PALBOCICLIB [Suspect]
     Active Substance: PALBOCICLIB
     Indication: BREAST CANCER METASTATIC
     Dosage: 125 MG, CYCLIC
     Dates: start: 20180326
  2. DIFFU K [Concomitant]
     Active Substance: POTASSIUM CHLORIDE
     Dosage: UNK
  3. PENTASA [Concomitant]
     Active Substance: MESALAMINE
     Dosage: UNK
  4. LASILIX [FUROSEMIDE] [Concomitant]
     Active Substance: FUROSEMIDE
     Dosage: 40 MG, 1X/DAY IN THE MORNING
  5. AUGMENTIN [Concomitant]
     Active Substance: AMOXICILLIN\CLAVULANATE POTASSIUM
     Indication: CHRONIC OBSTRUCTIVE PULMONARY DISEASE
     Dosage: UNK
     Route: 048
     Dates: start: 20210621
  6. ELIQUIS [Concomitant]
     Active Substance: APIXABAN
     Dosage: 2.5 (UNIT NOT REPORTED), 2X/DAY, IN THE MORNING AND IN THE EVENING
  7. IBUFETUM [Concomitant]
     Active Substance: IBUPROFEN
     Dosage: UNK
  8. LEVOTHYROX [Concomitant]
     Active Substance: LEVOTHYROXINE
     Dosage: UNK
  9. METEOXANE [PHLOROGLUCINOL;SIMETICONE] [Concomitant]
     Active Substance: DIMETHICONE\PHLOROGLUCINOL
     Dosage: UNK
  10. ALPRESS [Concomitant]
     Active Substance: PRAZOSIN
     Dosage: 2.5 (UNIT NOT REPORTED), 2X/DAY, IN THE MORNING AND IN THE EVENING
  11. LERCAN [Concomitant]
     Active Substance: LERCANIDIPINE
     Dosage: UNK
  12. PANTOPRAZOLE SODIUM. [Concomitant]
     Active Substance: PANTOPRAZOLE SODIUM
     Dosage: UNK
  13. MACROGOL [Concomitant]
     Active Substance: POLYETHYLENE GLYCOLS
     Dosage: UNK
  14. SERTRALINE HYDROCHLORIDE. [Concomitant]
     Active Substance: SERTRALINE HYDROCHLORIDE
     Dosage: UNK
  15. RHINOMAXIL [Concomitant]
     Active Substance: BECLOMETHASONE DIPROPIONATE
     Dosage: UNK
  16. COMIRNATY [Concomitant]
     Active Substance: TOZINAMERAN
     Indication: COVID-19 IMMUNISATION
     Dosage: DOSE 1, SINGLE
     Dates: start: 20210608, end: 20210608
  17. FEMARA [Suspect]
     Active Substance: LETROZOLE
     Indication: BREAST CANCER METASTATIC
     Dosage: 2.5 MG, CYCLIC
     Dates: start: 20180326
  18. PARACETAMOL [Concomitant]
     Active Substance: ACETAMINOPHEN
     Dosage: UNK
  19. BISOPROLOL FUMARATE. [Concomitant]
     Active Substance: BISOPROLOL FUMARATE
     Dosage: UNK

REACTIONS (3)
  - Pneumonia [Recovered/Resolved with Sequelae]
  - General physical health deterioration [Recovered/Resolved with Sequelae]
  - Chronic obstructive pulmonary disease [Recovered/Resolved with Sequelae]

NARRATIVE: CASE EVENT DATE: 20210628
